FAERS Safety Report 5821091-7 (Version None)
Quarter: 2008Q3

REPORT INFORMATION
  Report Type: 
  Country: None (occurrence: None)
  Receive Date: 20080718
  Receipt Date: 20080718
  Transmission Date: 20090109
  Serious: Yes (Other)
  Sender: FDA-Public Use
  Company Number: None

PATIENT
  Age: 77 Year
  Sex: Female

DRUGS (1)
  1. HUMIRA [Suspect]
     Indication: CROHN'S DISEASE
     Dosage: 40 MG EVERY OTHER WEEK SQ
     Route: 058
     Dates: start: 20080410, end: 20080620

REACTIONS (6)
  - PAIN OF SKIN [None]
  - PURULENT DISCHARGE [None]
  - PYREXIA [None]
  - RASH [None]
  - SKIN DISORDER [None]
  - SKIN INFLAMMATION [None]
